FAERS Safety Report 18889325 (Version 2)
Quarter: 2021Q1

REPORT INFORMATION
  Report Type: Spontaneous
  Country: CN (occurrence: CN)
  Receive Date: 20210213
  Receipt Date: 20210222
  Transmission Date: 20210420
  Serious: No
  Sender: FDA-Public Use
  Company Number: CN-009507513-2102CHN004513

PATIENT
  Age: 92 Year
  Sex: Female

DRUGS (1)
  1. TIENAM [Suspect]
     Active Substance: CILASTATIN SODIUM\IMIPENEM
     Indication: SEPTIC SHOCK
     Dosage: 1 GRAM, TID
     Route: 041
     Dates: start: 20210123, end: 20210128

REACTIONS (4)
  - Psychiatric symptom [Recovered/Resolved]
  - Dyspnoea [Recovered/Resolved]
  - Disorganised speech [Recovered/Resolved]
  - Chest discomfort [Recovered/Resolved]

NARRATIVE: CASE EVENT DATE: 20210128
